FAERS Safety Report 7607759 (Version 5)
Quarter: 2016Q2

REPORT INFORMATION
  Report Type: Report from Study
  Country: GR (occurrence: GR)
  Receive Date: 20100927
  Receipt Date: 20160531
  Transmission Date: 20160815
  Serious: Yes (Hospitalization, Other)
  Sender: FDA-Public Use
  Company Number: GR-JNJFOC-20100905787

PATIENT
  Age: 62 Year
  Sex: Male
  Weight: 65 kg

DRUGS (3)
  1. AZATHIOPRINE. [Concomitant]
     Active Substance: AZATHIOPRINE
     Indication: COLITIS ULCERATIVE
     Dates: start: 201006, end: 20100914
  2. INFLIXIMAB, RECOMBINANT [Suspect]
     Active Substance: INFLIXIMAB
     Indication: COLITIS ULCERATIVE
     Route: 042
     Dates: start: 20100805
  3. SULFASALAZINE. [Concomitant]
     Active Substance: SULFASALAZINE
     Indication: COLITIS ULCERATIVE
     Dates: start: 201007, end: 20100914

REACTIONS (8)
  - Colitis ulcerative [Recovered/Resolved]
  - Pyrexia [Not Recovered/Not Resolved]
  - Mental status changes [Not Recovered/Not Resolved]
  - Blood magnesium decreased [Recovered/Resolved]
  - Cerebral ischaemia [Recovered/Resolved]
  - Erythema [Not Recovered/Not Resolved]
  - Tremor [Not Recovered/Not Resolved]
  - Cerebral arteriosclerosis [Unknown]

NARRATIVE: CASE EVENT DATE: 20100914
